FAERS Safety Report 14815862 (Version 1)
Quarter: 2018Q2

REPORT INFORMATION
  Report Type: Spontaneous
  Country: US (occurrence: US)
  Receive Date: 20180426
  Receipt Date: 20180426
  Transmission Date: 20180711
  Serious: No
  Sender: FDA-Public Use
  Company Number: US-GLAXOSMITHKLINE-US2018066460

PATIENT
  Sex: Female

DRUGS (1)
  1. ZEASORB (ALDIOXA\CHLOROXYLENOL) [Suspect]
     Active Substance: ALDIOXA\CHLOROXYLENOL
     Indication: FUNGAL INFECTION
     Dosage: UNK

REACTIONS (1)
  - Product administered at inappropriate site [Unknown]
